FAERS Safety Report 4685312-9 (Version None)
Quarter: 2005Q2

REPORT INFORMATION
  Report Type: 
  Country: None (occurrence: None)
  Receive Date: 20050608
  Receipt Date: 20050311
  Transmission Date: 20051028
  Serious: Yes (Other)
  Sender: FDA-Public Use
  Company Number: PHFR2005GB01199

PATIENT
  Age: 13 Year
  Sex: Male
  Weight: 98 kg

DRUGS (7)
  1. ADRENALINE [Suspect]
     Dosage: 1/80000
  2. PREDNISOLONE [Concomitant]
     Dosage: 40MG/DAY
     Route: 048
     Dates: start: 20040222, end: 20050217
  3. SODIUM CROMOGLICATE [Concomitant]
     Dosage: 100 MG, QID
     Route: 048
  4. RITALIN [Suspect]
     Indication: ATTENTION DEFICIT/HYPERACTIVITY DISORDER
     Dosage: 15MG.DAY
     Route: 048
  5. LIDOCAINE [Suspect]
     Dates: start: 20050311
  6. RANITIDINE [Concomitant]
     Dosage: 150 MG, BID
     Route: 048
  7. KETOTIFEN [Concomitant]
     Route: 048
     Dates: start: 20050128, end: 20050228

REACTIONS (7)
  - CHOKING [None]
  - DYSPNOEA [None]
  - HEADACHE [None]
  - HYPERSENSITIVITY [None]
  - MALAISE [None]
  - RETCHING [None]
  - SHOCK [None]
